FAERS Safety Report 4280398-8 (Version None)
Quarter: 2004Q1

REPORT INFORMATION
  Report Type: 
  Country: None (occurrence: None)
  Receive Date: 20040126
  Receipt Date: 20040122
  Transmission Date: 20041129
  Serious: Yes (Life-Threatening, Hospitalization, Disabling)
  Sender: FDA-Public Use
  Company Number: 2004195214US

PATIENT

DRUGS (1)
  1. BEXTRA [Suspect]
     Dosage: QD, ORAL
     Route: 048

REACTIONS (1)
  - APLASTIC ANAEMIA [None]
